FAERS Safety Report 9321431 (Version 1)
Quarter: 2013Q2

REPORT INFORMATION
  Report Type: Spontaneous
  Country: US (occurrence: None)
  Receive Date: 20130531
  Receipt Date: 20130531
  Transmission Date: 20140414
  Serious: Yes (Hospitalization)
  Sender: FDA-Public Use
  Company Number: None

PATIENT
  Sex: Female
  Weight: 97.7 kg

DRUGS (1)
  1. CISPLATIN [Suspect]

REACTIONS (9)
  - Hypoaesthesia [None]
  - Paraesthesia [None]
  - Slow speech [None]
  - Speech disorder [None]
  - Hypomagnesaemia [None]
  - Hypokalaemia [None]
  - Diarrhoea [None]
  - Diarrhoea [None]
  - Conversion disorder [None]
